FAERS Safety Report 9571029 (Version 1)
Quarter: 2013Q1

REPORT INFORMATION
  Report Type: Spontaneous
  Country: US (occurrence: None)
  Receive Date: 20120806
  Receipt Date: 20120806
  Transmission Date: 20140127
  Serious: Yes (Other)
  Sender: FDA-Public Use
  Company Number: DSU-2011-05152

PATIENT
  Age: 47 Year
  Sex: Female
  Weight: 74.84 kg

DRUGS (1)
  1. BENICAR HCT (HYDROCHLOROTHIAZIDE, OLMESARTAN MEDOXOMIL ) (TABLET) (HYDROCHLOROTHIAZIDE, OLMESARTAN MEDOXOMIL) [Suspect]
     Indication: HYPERTENSION
     Dosage: 40/25MG, (QD), PER ORAL
     Route: 048
     Dates: start: 2002, end: 2008

REACTIONS (5)
  - Stevens-Johnson syndrome [None]
  - Hypoaesthesia [None]
  - Blood pressure increased [None]
  - Temperature intolerance [None]
  - Pain in extremity [None]
